FAERS Safety Report 12549422 (Version 1)
Quarter: 2016Q3

REPORT INFORMATION
  Report Type: Spontaneous
  Country: US (occurrence: US)
  Receive Date: 20160712
  Receipt Date: 20160712
  Transmission Date: 20161109
  Serious: No
  Sender: FDA-Public Use
  Company Number: US-TEVA-671988ACC

PATIENT
  Sex: Female
  Weight: 65.83 kg

DRUGS (1)
  1. PARAGARD T 380A [Suspect]
     Active Substance: COPPER
     Indication: CONTRACEPTION
     Dates: start: 20160426

REACTIONS (4)
  - Mood swings [Recovered/Resolved]
  - Anxiety [Not Recovered/Not Resolved]
  - Vaginal haemorrhage [Recovered/Resolved]
  - Depression [Not Recovered/Not Resolved]
